FAERS Safety Report 17708376 (Version 1)
Quarter: 2020Q2

REPORT INFORMATION
  Report Type: Spontaneous
  Country: FR (occurrence: FR)
  Receive Date: 20200426
  Receipt Date: 20200426
  Transmission Date: 20200714
  Serious: Yes (Hospitalization)
  Sender: FDA-Public Use
  Company Number: NVSC2020FR109456

PATIENT
  Age: 37 Year
  Sex: Female
  Weight: 57 kg

DRUGS (11)
  1. CORTANCYL [Concomitant]
     Active Substance: PREDNISONE
     Indication: ANTIBIOTIC PROPHYLAXIS
     Dosage: 1 DF, QD
     Route: 048
     Dates: start: 20191109
  2. CLARITHROMYCIN. [Suspect]
     Active Substance: CLARITHROMYCIN
     Indication: MINERAL SUPPLEMENTATION
     Dosage: 1000 MG, QD
     Route: 048
     Dates: start: 20191212
  3. ETHAMBUTOL [Concomitant]
     Active Substance: ETHAMBUTOL HYDROCHLORIDE
     Indication: MYCOBACTERIUM AVIUM COMPLEX INFECTION
     Dosage: 1000 MG, QD
     Route: 048
     Dates: start: 20191204
  4. REPAGLINIDE. [Concomitant]
     Active Substance: REPAGLINIDE
     Indication: MYCOBACTERIUM AVIUM COMPLEX INFECTION
     Dosage: 1 G, QD
     Route: 048
     Dates: start: 20191219
  5. CHOLECALCIFEROL [Concomitant]
     Active Substance: CHOLECALCIFEROL
     Indication: MINERAL SUPPLEMENTATION
     Dosage: 2 G, QD
     Route: 048
     Dates: start: 20191212
  6. ZOLPIDEM [Concomitant]
     Active Substance: ZOLPIDEM TARTRATE
     Indication: TYPE 2 DIABETES MELLITUS
     Dosage: 2 MG, QD
     Route: 048
     Dates: start: 20191220
  7. PARACETAMOL [Concomitant]
     Active Substance: ACETAMINOPHEN
     Indication: MYCOBACTERIUM AVIUM COMPLEX INFECTION
     Dosage: 60 MG, QD
     Route: 048
     Dates: start: 20191224
  8. BACTRIM [Concomitant]
     Active Substance: SULFAMETHOXAZOLE\TRIMETHOPRIM
     Indication: MYCOBACTERIUM AVIUM COMPLEX INFECTION
     Dosage: 1200 MG, QD
     Route: 048
     Dates: start: 20191204
  9. CHLORURE DE POTASSIUM [Concomitant]
     Active Substance: POTASSIUM CHLORIDE
     Indication: PAIN
     Dosage: 4 G, QD
     Route: 048
     Dates: start: 20191126
  10. ANSATIPINE [Interacting]
     Active Substance: RIFABUTIN
     Indication: VITAMIN SUPPLEMENTATION
     Route: 048
     Dates: end: 20191212
  11. CALCIUM [Concomitant]
     Active Substance: CALCIUM
     Indication: INSOMNIA
     Dosage: 10 MG
     Route: 048
     Dates: start: 20191211

REACTIONS (1)
  - Uveitis [Recovering/Resolving]

NARRATIVE: CASE EVENT DATE: 20200103
